FAERS Safety Report 9248025 (Version 18)
Quarter: 2016Q2

REPORT INFORMATION
  Report Type: Spontaneous
  Country: US (occurrence: US)
  Receive Date: 20130423
  Receipt Date: 20160526
  Transmission Date: 20160815
  Serious: Yes (Hospitalization, Other)
  Sender: FDA-Public Use
  Company Number: US-PFIZER INC-2013125350

PATIENT
  Age: 60 Year
  Sex: Male
  Weight: 84 kg

DRUGS (13)
  1. SUTENT [Suspect]
     Active Substance: SUNITINIB MALATE
     Dosage: 37.5 MG ONCE DAILY CONTINOUSLY (THREE 12.5 MG PILLS TOGETHER ONCE DAILY)
     Dates: start: 201307, end: 20131231
  2. LORAZEPAM. [Concomitant]
     Active Substance: LORAZEPAM
     Indication: ANXIETY
     Dosage: UNK
     Dates: start: 20120201
  3. AMLODIPINE [Concomitant]
     Active Substance: AMLODIPINE BESYLATE
     Indication: HYPERTENSION
     Dosage: 10 MG, DAILY
     Dates: start: 20120201
  4. SUTENT [Suspect]
     Active Substance: SUNITINIB MALATE
     Dosage: 37.5 MG, 1X/DAY
     Dates: start: 2013
  5. SUTENT [Suspect]
     Active Substance: SUNITINIB MALATE
     Dosage: 37.5 MG, CYCLIC DAILY (2 WEEKS ON AND 1 WEEK OFF)
     Dates: start: 2014, end: 2014
  6. LORAZEPAM. [Concomitant]
     Active Substance: LORAZEPAM
     Indication: SOMNOLENCE
     Dosage: 1 MG, UNK
     Dates: start: 2012
  7. XANAX [Concomitant]
     Active Substance: ALPRAZOLAM
     Indication: SLEEP DISORDER
     Dosage: 2 MG, 3X/DAY
     Dates: start: 2012
  8. AMLODIPINE [Concomitant]
     Active Substance: AMLODIPINE BESYLATE
     Dosage: UNK
     Dates: start: 2015
  9. FERROUS SULFATE. [Concomitant]
     Active Substance: FERROUS SULFATE
     Indication: BLOOD TEST ABNORMAL
     Dosage: 325 MG, 3X/DAY (STARTED: 6 MONTHS)
  10. SUTENT [Suspect]
     Active Substance: SUNITINIB MALATE
     Indication: PANCREATIC NEUROENDOCRINE TUMOUR
     Dosage: 37.5 MG (12.5 MG 3 TIMES A DAY)
     Dates: start: 20130305, end: 201307
  11. OMEPRAZOLE. [Concomitant]
     Active Substance: OMEPRAZOLE
     Indication: NAUSEA
     Dosage: UNK
     Dates: start: 20120201
  12. SUTENT [Suspect]
     Active Substance: SUNITINIB MALATE
     Dosage: 37.5MG DAILY CYCLIC (4 WEEKS ON AND 1 WEE OFF)
     Dates: start: 201401, end: 2014
  13. OMEPRAZOLE. [Concomitant]
     Active Substance: OMEPRAZOLE
     Dosage: 20 MG, 1X/DAY (2 YEARS)
     Dates: start: 2013

REACTIONS (37)
  - Gastrooesophageal reflux disease [Not Recovered/Not Resolved]
  - Memory impairment [Not Recovered/Not Resolved]
  - Weight decreased [Recovered/Resolved]
  - Glossodynia [Not Recovered/Not Resolved]
  - Productive cough [Unknown]
  - Hypothyroidism [Unknown]
  - Tumour haemorrhage [Recovered/Resolved]
  - Thyroid disorder [Not Recovered/Not Resolved]
  - Malaise [Not Recovered/Not Resolved]
  - Skin disorder [Not Recovered/Not Resolved]
  - Mouth haemorrhage [Not Recovered/Not Resolved]
  - Tongue haemorrhage [Not Recovered/Not Resolved]
  - Diarrhoea [Not Recovered/Not Resolved]
  - Hypertension [Not Recovered/Not Resolved]
  - Ageusia [Not Recovered/Not Resolved]
  - Dysgeusia [Not Recovered/Not Resolved]
  - Gingival bleeding [Recovered/Resolved]
  - Nausea [Not Recovered/Not Resolved]
  - Night sweats [Not Recovered/Not Resolved]
  - Skin discolouration [Recovered/Resolved]
  - Gingival pain [Not Recovered/Not Resolved]
  - Skin haemorrhage [Not Recovered/Not Resolved]
  - Palmar-plantar erythrodysaesthesia syndrome [Not Recovered/Not Resolved]
  - Wound [Not Recovered/Not Resolved]
  - Fatigue [Not Recovered/Not Resolved]
  - Haematochezia [Not Recovered/Not Resolved]
  - Abdominal pain [Not Recovered/Not Resolved]
  - Pain in extremity [Not Recovered/Not Resolved]
  - Oral discomfort [Not Recovered/Not Resolved]
  - Oral pain [Recovering/Resolving]
  - Peripheral swelling [Recovering/Resolving]
  - Mouth ulceration [Unknown]
  - Confusional state [Unknown]
  - Constipation [Not Recovered/Not Resolved]
  - Skin exfoliation [Not Recovered/Not Resolved]
  - Decreased appetite [Recovered/Resolved]
  - Hyperkeratosis [Not Recovered/Not Resolved]

NARRATIVE: CASE EVENT DATE: 2013
